FAERS Safety Report 7235758-X (Version None)
Quarter: 2011Q1

REPORT INFORMATION
  Report Type: 
  Country: None (occurrence: None)
  Receive Date: 20110110
  Receipt Date: 20101228
  Transmission Date: 20110831
  Serious: Yes (Other)
  Sender: FDA-Public Use
  Company Number: DSA_44610_2011

PATIENT
  Age: 24 Month

DRUGS (1)
  1. HERBESSER (HERBESSER TANABE- DILTIAZEM HYDROCHLORIDE) (NOT SPECIFIED) [Suspect]
     Indication: PRODUCT USED FOR UNKNOWN INDICATION
     Dosage: 1 DF, 100 MG OR 200 MG; ORAL
     Route: 048
     Dates: start: 20101222, end: 20101222

REACTIONS (1)
  - ACCIDENTAL EXPOSURE [None]
